FAERS Safety Report 16767017 (Version 1)
Quarter: 2019Q4

REPORT INFORMATION
  Report Type: Spontaneous
  Country: US (occurrence: US)
  Receive Date: 20190902
  Receipt Date: 20190902
  Transmission Date: 20200122
  Serious: No
  Sender: FDA-Public Use
  Company Number: None

PATIENT
  Age: 40 Year
  Sex: Female
  Weight: 78.75 kg

DRUGS (11)
  1. AMBIEN [Concomitant]
     Active Substance: ZOLPIDEM TARTRATE
  2. MAGNESIUM [Concomitant]
     Active Substance: MAGNESIUM
  3. COD LIVER OIL [Concomitant]
     Active Substance: COD LIVER OIL
  4. COQ10 [Concomitant]
     Active Substance: UBIDECARENONE
  5. AJOVY [Suspect]
     Active Substance: FREMANEZUMAB-VFRM
     Indication: MIGRAINE
     Dosage: ?          QUANTITY:1 INJECTION(S);OTHER FREQUENCY:MONTHLY;?
     Route: 058
     Dates: start: 20190627, end: 20190627
  6. XANAX [Concomitant]
     Active Substance: ALPRAZOLAM
  7. PROZAC [Concomitant]
     Active Substance: FLUOXETINE HYDROCHLORIDE
  8. PROBIOTIC [Concomitant]
     Active Substance: PROBIOTICS NOS
  9. TYLENOL [Concomitant]
     Active Substance: ACETAMINOPHEN
  10. TOPAMAX [Concomitant]
     Active Substance: TOPIRAMATE
  11. MAXALT [Concomitant]
     Active Substance: RIZATRIPTAN BENZOATE

REACTIONS (2)
  - Insomnia [None]
  - Constipation [None]

NARRATIVE: CASE EVENT DATE: 20190627
